FAERS Safety Report 23835290 (Version 2)
Quarter: 2024Q2

REPORT INFORMATION
  Report Type: Report from Study
  Country: US (occurrence: US)
  Receive Date: 20240509
  Receipt Date: 20240607
  Transmission Date: 20240716
  Serious: Yes (Hospitalization, Other)
  Sender: FDA-Public Use
  Company Number: US-TG THERAPEUTICS INC.-TGT003538

PATIENT
  Sex: Female
  Weight: 99.773 kg

DRUGS (1)
  1. UBLITUXIMAB [Suspect]
     Active Substance: UBLITUXIMAB
     Indication: Multiple sclerosis
     Dosage: 150 MILLIGRAM
     Route: 042
     Dates: start: 20240405, end: 20240405

REACTIONS (7)
  - Atrial fibrillation [Recovered/Resolved]
  - Acute myocardial infarction [Unknown]
  - Cardiac myxoma [Unknown]
  - Stress cardiomyopathy [Recovered/Resolved]
  - Emphysema [Unknown]
  - Infusion related reaction [Recovered/Resolved]
  - Pneumonia [Recovering/Resolving]

NARRATIVE: CASE EVENT DATE: 20240101
